FAERS Safety Report 6082945-2 (Version None)
Quarter: 2009Q1

REPORT INFORMATION
  Report Type: 
  Country: None (occurrence: None)
  Receive Date: 20090204
  Receipt Date: 20080311
  Transmission Date: 20090719
  Serious: No
  Sender: FDA-Public Use
  Company Number: 271174

PATIENT
  Age: 37 Year
  Sex: Female

DRUGS (3)
  1. NOVOLOG [Suspect]
     Indication: TYPE 1 DIABETES MELLITUS
     Dosage: 0.9 U/HR AND THEN SLIDING SCALE FOR BASAL RATE, SUBCUTAN.-PUMP
     Route: 058
  2. PROGRAF [Concomitant]
  3. IMURAN [Concomitant]

REACTIONS (1)
  - HYPERSENSITIVITY [None]
